FAERS Safety Report 8295952-6 (Version None)
Quarter: 2012Q2

REPORT INFORMATION
  Report Type: 
  Country: None (occurrence: None)
  Receive Date: 20120418
  Receipt Date: 20120418
  Transmission Date: 20120825
  Serious: No
  Sender: FDA-Public Use
  Company Number: US-PFIZER INC-2012068727

PATIENT
  Sex: Female
  Weight: 77.1 kg

DRUGS (11)
  1. AMLODIPINE [Concomitant]
     Indication: HYPERTENSION
     Dosage: 2.5 MG, UNK
  2. NITROFURANTOIN [Concomitant]
  3. ETODOLAC [Concomitant]
     Indication: FIBROMYALGIA
     Dosage: UNK
  4. LIPITOR [Suspect]
     Indication: LOW DENSITY LIPOPROTEIN INCREASED
     Dosage: 20 MG, UNK
     Route: 048
  5. LIPITOR [Suspect]
     Indication: BLOOD CHOLESTEROL INCREASED
     Dosage: 40 MG, UNK
     Route: 048
     Dates: start: 20111125
  6. FISH OIL [Concomitant]
     Indication: LOW DENSITY LIPOPROTEIN INCREASED
     Dosage: 4000 MG, UNK
  7. LIPITOR [Suspect]
     Indication: BLOOD TRIGLYCERIDES INCREASED
  8. METHYLPREDNISOLONE [Concomitant]
     Dosage: 4 MG, DAILY
  9. OMEPRAZOLE [Concomitant]
     Indication: GASTRIC DISORDER
     Dosage: 4 MG, DAILY
  10. NITROFURANTOIN [Concomitant]
     Indication: RENAL DISORDER
     Dosage: 100 MG, DAILY
  11. NIACIN [Concomitant]
     Indication: LOW DENSITY LIPOPROTEIN INCREASED
     Dosage: 750 MG, UNK

REACTIONS (3)
  - FEELING ABNORMAL [None]
  - JOINT STIFFNESS [None]
  - MUSCLE SPASMS [None]
